FAERS Safety Report 12620370 (Version 3)
Quarter: 2016Q3

REPORT INFORMATION
  Report Type: Spontaneous
  Country: US (occurrence: US)
  Receive Date: 20160803
  Receipt Date: 20160907
  Transmission Date: 20161109
  Serious: Yes (Hospitalization)
  Sender: FDA-Public Use
  Company Number: US-ASTRAZENECA-2016SE77534

PATIENT
  Age: 70 Year
  Sex: Female
  Weight: 63.5 kg

DRUGS (9)
  1. TOPROL XL [Suspect]
     Active Substance: METOPROLOL SUCCINATE
     Indication: EXTRASYSTOLES
     Route: 048
     Dates: start: 2008
  2. COQ10 [Concomitant]
     Active Substance: UBIDECARENONE
     Indication: CARDIOVASCULAR DISORDER
     Dosage: DAILY
     Route: 048
     Dates: start: 2006
  3. GARLIQUE/GARLIC [Concomitant]
     Dosage: DAILY
     Route: 048
  4. ONE-A-DAY NOS [Concomitant]
     Active Substance: MINERALS\VITAMINS
     Indication: SUPPLEMENTATION THERAPY
     Route: 048
  5. VITAMIN B12 [Concomitant]
     Active Substance: CYANOCOBALAMIN
     Indication: FATIGUE
     Route: 048
  6. TOPROL XL [Suspect]
     Active Substance: METOPROLOL SUCCINATE
     Indication: EXTRASYSTOLES
     Dosage: GENERIC METOPROLOL SUCCINATE
     Route: 048
     Dates: start: 2008, end: 2008
  7. VITAMIN B12 [Concomitant]
     Active Substance: CYANOCOBALAMIN
     Indication: DEPRESSED MOOD
     Route: 048
  8. COQ10 [Concomitant]
     Active Substance: UBIDECARENONE
     Indication: PAIN
     Dosage: DAILY
     Route: 048
     Dates: start: 2006
  9. PROBIOTIC [Concomitant]
     Active Substance: PROBIOTICS NOS
     Route: 048

REACTIONS (11)
  - Palpitations [Unknown]
  - Intentional product misuse [Unknown]
  - Gait disturbance [Unknown]
  - Extrasystoles [Unknown]
  - Heart rate increased [Unknown]
  - Malaise [Unknown]
  - Insomnia [Unknown]
  - Condition aggravated [Unknown]
  - Weight decreased [Unknown]
  - Dizziness [Unknown]
  - Feeling abnormal [Unknown]

NARRATIVE: CASE EVENT DATE: 2008
